FAERS Safety Report 4825422-6 (Version None)
Quarter: 2005Q4

REPORT INFORMATION
  Report Type: 
  Country: None (occurrence: None)
  Receive Date: 20051111
  Receipt Date: 20050721
  Transmission Date: 20060501
  Serious: Yes (Hospitalization)
  Sender: FDA-Public Use
  Company Number: US-MERCK-0507USA03355

PATIENT
  Age: 46 Year
  Sex: Male
  Weight: 91 kg

DRUGS (9)
  1. LIPITOR [Concomitant]
     Route: 065
  2. TRICOR [Concomitant]
     Route: 065
  3. PRILOSEC [Concomitant]
     Route: 065
  4. NIASPAN [Concomitant]
     Route: 065
  5. ZYRTEC [Concomitant]
     Route: 065
  6. FLEXERIL [Concomitant]
     Indication: BACK PAIN
     Route: 065
     Dates: start: 20010101, end: 20010501
  7. NAPROSYN [Concomitant]
     Route: 065
  8. INDOCIN [Concomitant]
     Route: 065
  9. VIOXX [Suspect]
     Indication: BACK PAIN
     Route: 048
     Dates: start: 20000901, end: 20031120

REACTIONS (17)
  - ACUTE MYOCARDIAL INFARCTION [None]
  - ANAEMIA [None]
  - ANGINA UNSTABLE [None]
  - ARTERIOSCLEROSIS CORONARY ARTERY [None]
  - BONE DISORDER [None]
  - CORONARY ARTERY DISEASE [None]
  - DEPRESSION [None]
  - ESSENTIAL HYPERTENSION [None]
  - GENERALISED ANXIETY DISORDER [None]
  - HYPERLIPIDAEMIA [None]
  - HYPOAESTHESIA [None]
  - IRRITABLE BOWEL SYNDROME [None]
  - RENAL DISORDER [None]
  - RENAL FAILURE ACUTE [None]
  - SHOULDER PAIN [None]
  - URETERAL DISORDER [None]
  - VENTRICULAR EXTRASYSTOLES [None]
